FAERS Safety Report 12232320 (Version 1)
Quarter: 2016Q2

REPORT INFORMATION
  Report Type: Spontaneous
  Country: None (occurrence: ID)
  Receive Date: 20160401
  Receipt Date: 20160401
  Transmission Date: 20160815
  Serious: Yes (Death)
  Sender: FDA-Public Use
  Company Number: ID-POPULATION COUNCIL, INC.-1050150

PATIENT
  Age: 25 Year
  Sex: Female
  Weight: 48 kg

DRUGS (1)
  1. JADELLE [Suspect]
     Active Substance: LEVONORGESTREL
     Indication: CONTRACEPTION
     Route: 059
     Dates: start: 19981121, end: 20030317

REACTIONS (1)
  - Dengue fever [None]
